FAERS Safety Report 24642429 (Version 1)
Quarter: 2024Q4

REPORT INFORMATION
  Report Type: Spontaneous
  Country: FR (occurrence: FR)
  Receive Date: 20241120
  Receipt Date: 20241120
  Transmission Date: 20250115
  Serious: Yes (Hospitalization)
  Sender: MYLAN
  Company Number: None

PATIENT
  Age: 47 Year
  Sex: Male
  Weight: 83 kg

DRUGS (14)
  1. ESCITALOPRAM [Suspect]
     Active Substance: ESCITALOPRAM OXALATE
     Indication: Depression
     Dosage: 15 MILLIGRAM, QD
     Route: 048
     Dates: end: 20241012
  2. LEVOFLOXACIN [Suspect]
     Active Substance: LEVOFLOXACIN
     Indication: Pyelonephritis
     Dosage: UNK
     Route: 048
     Dates: start: 20241011, end: 20241012
  3. OXCARBAZEPINE [Suspect]
     Active Substance: OXCARBAZEPINE
     Indication: Pain
     Dosage: 300 MILLIGRAM, QD
     Route: 048
     Dates: end: 20241012
  4. TRAMADOL [Suspect]
     Active Substance: TRAMADOL
     Indication: Pain
     Dosage: 150 MILLIGRAM, QD
     Route: 048
     Dates: end: 20241012
  5. BACLOFEN [Suspect]
     Active Substance: BACLOFEN
     Indication: Multiple sclerosis
     Dosage: 50 MILLIGRAM, QD
     Route: 048
     Dates: end: 20241012
  6. DALFAMPRIDINE [Suspect]
     Active Substance: DALFAMPRIDINE
     Indication: Multiple sclerosis
     Dosage: 2 DOSAGE FORM, QD
     Route: 048
     Dates: end: 20241012
  7. ALFUZOSIN HYDROCHLORIDE [Concomitant]
     Active Substance: ALFUZOSIN HYDROCHLORIDE
     Dosage: 10 MILLIGRAM, QD
     Route: 048
  8. ALPRAZOLAM [Concomitant]
     Active Substance: ALPRAZOLAM
     Dosage: 0.75 MILLIGRAM, QD
     Route: 048
     Dates: end: 20241012
  9. ESOMEPRAZOLE [Concomitant]
     Active Substance: ESOMEPRAZOLE
     Dosage: 20 MILLIGRAM, QD
     Route: 048
     Dates: end: 20241012
  10. LOSARTAN POTASSIUM [Concomitant]
     Active Substance: LOSARTAN POTASSIUM
     Dosage: 50 MILLIGRAM, QD
     Route: 048
     Dates: end: 20241012
  11. TOVIAZ [Concomitant]
     Active Substance: FESOTERODINE FUMARATE
     Dosage: 30 MILLIGRAM, QD
     Route: 048
     Dates: end: 20241012
  12. TADALAFIL [Concomitant]
     Active Substance: TADALAFIL
     Dosage: 5 MILLIGRAM, QD
     Route: 048
     Dates: end: 20241012
  13. POLYETHYLENE GLYCOL 4000 [Concomitant]
     Active Substance: POLYETHYLENE GLYCOL 4000
     Dosage: 2 DOSAGE FORM, QD
     Route: 048
     Dates: end: 20241012
  14. ZOPICLONE [Concomitant]
     Active Substance: ZOPICLONE
     Dosage: 7.5 MILLIGRAM, QD
     Route: 048
     Dates: end: 20241012

REACTIONS (2)
  - Confusional state [Recovered/Resolved]
  - Agitation [Recovered/Resolved]

NARRATIVE: CASE EVENT DATE: 20241012
